FAERS Safety Report 9204407 (Version 16)
Quarter: 2014Q2

REPORT INFORMATION
  Report Type: Report from Study
  Country: CA (occurrence: CA)
  Receive Date: 20130402
  Receipt Date: 20140508
  Transmission Date: 20141212
  Serious: Yes (Other)
  Sender: FDA-Public Use
  Company Number: CA-ROCHE-1208100

PATIENT
  Age: 59 Year
  Sex: Female
  Weight: 95 kg

DRUGS (13)
  1. ACTEMRA [Suspect]
     Indication: RHEUMATOID ARTHRITIS
     Route: 042
     Dates: start: 20130315
  2. ACTEMRA [Suspect]
     Indication: PSORIATIC ARTHROPATHY
     Route: 042
     Dates: start: 20130801
  3. INSULIN [Concomitant]
  4. COPAXONE [Concomitant]
  5. WELLBUTRIN [Concomitant]
  6. ALPRAZOLAM [Concomitant]
  7. ZOPICLONE [Concomitant]
  8. ABREVA [Concomitant]
  9. ARAVA [Concomitant]
  10. FOLIC ACID [Concomitant]
  11. METHOTREXATE [Concomitant]
  12. PREDNISONE [Concomitant]
  13. TECTA [Concomitant]

REACTIONS (43)
  - Chondropathy [Not Recovered/Not Resolved]
  - Radial nerve palsy [Recovering/Resolving]
  - Skin discolouration [Not Recovered/Not Resolved]
  - Nerve compression [Unknown]
  - Arthralgia [Not Recovered/Not Resolved]
  - Urinary tract infection [Unknown]
  - Cartilage injury [Not Recovered/Not Resolved]
  - Bone fragmentation [Not Recovered/Not Resolved]
  - Mouth ulceration [Not Recovered/Not Resolved]
  - Burning sensation [Recovered/Resolved]
  - Influenza [Not Recovered/Not Resolved]
  - Paronychia [Not Recovered/Not Resolved]
  - Cystitis [Not Recovered/Not Resolved]
  - Injection site mass [Unknown]
  - Injection site bruising [Unknown]
  - Nasopharyngitis [Recovering/Resolving]
  - Pain in extremity [Unknown]
  - Psoriasis [Not Recovered/Not Resolved]
  - Pain [Not Recovered/Not Resolved]
  - Musculoskeletal stiffness [Not Recovered/Not Resolved]
  - Abdominal pain [Recovered/Resolved]
  - Fatigue [Not Recovered/Not Resolved]
  - Influenza like illness [Unknown]
  - Nausea [Not Recovered/Not Resolved]
  - Peripheral swelling [Recovering/Resolving]
  - Joint swelling [Not Recovered/Not Resolved]
  - Mobility decreased [Not Recovered/Not Resolved]
  - Joint range of motion decreased [Not Recovered/Not Resolved]
  - Oral herpes [Unknown]
  - Chills [Not Recovered/Not Resolved]
  - Injection site swelling [Unknown]
  - Drug ineffective [Unknown]
  - Pollakiuria [Not Recovered/Not Resolved]
  - Psoriatic arthropathy [Unknown]
  - Injection site haemorrhage [Recovered/Resolved]
  - Fatigue [Not Recovered/Not Resolved]
  - Off label use [Unknown]
  - Diarrhoea [Recovered/Resolved]
  - Peripheral swelling [Unknown]
  - Arthritis [Not Recovered/Not Resolved]
  - Musculoskeletal stiffness [Not Recovered/Not Resolved]
  - Fall [Unknown]
  - Asthenia [Not Recovered/Not Resolved]
